FAERS Safety Report 7809829-0 (Version None)
Quarter: 2011Q4

REPORT INFORMATION
  Report Type: 
  Country: None (occurrence: None)
  Receive Date: 20111012
  Receipt Date: 20111005
  Transmission Date: 20120403
  Serious: Yes (Other)
  Sender: FDA-Public Use
  Company Number: US-PURDUE-USA-2011-0075797

PATIENT
  Age: 82 Year
  Sex: Female

DRUGS (1)
  1. COLACE CAPSULES 100 MG [Suspect]
     Indication: BOWEL MOVEMENT IRREGULARITY
     Dosage: 300 MG, DAILY PRN
     Route: 048

REACTIONS (1)
  - BLOOD GLUCOSE DECREASED [None]
